FAERS Safety Report 5852147-0 (Version None)
Quarter: 2008Q3

REPORT INFORMATION
  Report Type: 
  Country: None (occurrence: None)
  Receive Date: 20080821
  Receipt Date: 20080814
  Transmission Date: 20090109
  Serious: Yes (Hospitalization)
  Sender: FDA-Public Use
  Company Number: FR-BAYER-200824305GPV

PATIENT
  Age: 86 Year
  Sex: Female

DRUGS (1)
  1. CIPROFLOXACIN HYDROCHLORIDE [Suspect]
     Indication: CYSTITIS
     Route: 048
     Dates: start: 20080224, end: 20080307

REACTIONS (4)
  - EYE PAIN [None]
  - EYELID PTOSIS [None]
  - IIIRD NERVE PARALYSIS [None]
  - RHINALGIA [None]
